FAERS Safety Report 6222339-X (Version None)
Quarter: 2009Q2

REPORT INFORMATION
  Report Type: 
  Country: None (occurrence: None)
  Receive Date: 20090611
  Receipt Date: 20090608
  Transmission Date: 20091009
  Serious: Yes (Other)
  Sender: FDA-Public Use
  Company Number: US-BAYER-200922956NA

PATIENT
  Age: 28 Year
  Sex: Female

DRUGS (1)
  1. MIRENA [Suspect]
     Indication: CONTRACEPTION
     Route: 015
     Dates: start: 20090501

REACTIONS (7)
  - BACK PAIN [None]
  - HEADACHE [None]
  - IUCD COMPLICATION [None]
  - MEDICAL DEVICE PAIN [None]
  - NAUSEA [None]
  - NECK PAIN [None]
  - VAGINAL HAEMORRHAGE [None]
